FAERS Safety Report 4735088-1 (Version None)
Quarter: 2005Q3

REPORT INFORMATION
  Report Type: 
  Country: None (occurrence: None)
  Receive Date: 20050804
  Receipt Date: 20050630
  Transmission Date: 20060218
  Serious: Yes (Hospitalization)
  Sender: FDA-Public Use
  Company Number: US-MERCK-0507USA00173

PATIENT
  Age: 55 Year
  Sex: Female
  Weight: 99 kg

DRUGS (8)
  1. VIOXX [Suspect]
     Indication: ARTHRITIS
     Route: 048
     Dates: start: 20010101, end: 20030101
  2. VIOXX [Suspect]
     Route: 048
     Dates: start: 20010101, end: 20030101
  3. TARKA [Concomitant]
     Route: 065
  4. PRINIVIL [Concomitant]
     Route: 065
  5. ALBUTEROL [Concomitant]
     Route: 065
  6. ZESTRIL [Concomitant]
     Route: 065
  7. LORTAB [Concomitant]
     Route: 065
  8. XANAX [Concomitant]
     Route: 065

REACTIONS (2)
  - CHEST PAIN [None]
  - MYOCARDIAL INFARCTION [None]
